FAERS Safety Report 6389010-5 (Version None)
Quarter: 2009Q4

REPORT INFORMATION
  Report Type: 
  Country: None (occurrence: None)
  Receive Date: 20091001
  Receipt Date: 20090923
  Transmission Date: 20100525
  Serious: Yes (Death)
  Sender: FDA-Public Use
  Company Number: 20084798

PATIENT
  Age: 54 Year
  Sex: Female

DRUGS (4)
  1. LIORESAL [Suspect]
     Indication: MUSCLE SPASTICITY
     Dosage: MCG, DAILY, INTRATHECAL
     Route: 037
  2. CLONIDINE [Concomitant]
  3. FENTANYL [Concomitant]
  4. BUPIVACAINE [Concomitant]

REACTIONS (4)
  - NEPHRITIS [None]
  - RENAL FAILURE [None]
  - SEPSIS [None]
  - URINARY TRACT INFECTION [None]
